FAERS Safety Report 6964693-7 (Version None)
Quarter: 2010Q3

REPORT INFORMATION
  Report Type: 
  Country: None (occurrence: None)
  Receive Date: 20100903
  Receipt Date: 20100826
  Transmission Date: 20110219
  Serious: Yes (Life-Threatening)
  Sender: FDA-Public Use
  Company Number: US-SANOFI-AVENTIS-2010SA048743

PATIENT
  Age: 60 Year
  Sex: Male
  Weight: 46.8 kg

DRUGS (13)
  1. OXALIPLATIN [Suspect]
     Indication: PANCREATIC CARCINOMA
     Route: 041
     Dates: start: 20100407, end: 20100407
  2. OXALIPLATIN [Suspect]
     Route: 041
     Dates: start: 20100507, end: 20100507
  3. LEUCOVORIN CALCIUM [Suspect]
     Indication: PANCREATIC CARCINOMA
     Route: 041
     Dates: start: 20100407, end: 20100407
  4. LEUCOVORIN CALCIUM [Suspect]
     Route: 041
     Dates: start: 20100507, end: 20100507
  5. FLUOROURACIL [Suspect]
     Indication: PANCREATIC CARCINOMA
     Route: 040
     Dates: start: 20100407, end: 20100407
  6. FLUOROURACIL [Suspect]
     Route: 041
     Dates: start: 20100407, end: 20100408
  7. FLUOROURACIL [Suspect]
     Route: 040
     Dates: start: 20100507, end: 20100507
  8. FLUOROURACIL [Suspect]
     Route: 040
     Dates: start: 20100507, end: 20100508
  9. CORTICOSTEROID NOS [Suspect]
     Dates: end: 20100509
  10. EMEND [Suspect]
     Dates: end: 20100509
  11. OMEPRAZOLE [Concomitant]
  12. VITAMIN D [Concomitant]
  13. CALCIUM [Concomitant]

REACTIONS (2)
  - HYPERGLYCAEMIA [None]
  - HYPERMAGNESAEMIA [None]
